FAERS Safety Report 8976646 (Version 2)
Quarter: 2012Q4

REPORT INFORMATION
  Report Type: 
  Country: US (occurrence: US)
  Receive Date: 20121220
  Receipt Date: 20121227
  Transmission Date: 20130627
  Serious: Yes (Hospitalization, Other)
  Sender: FDA-Public Use
  Company Number: US-PFIZER INC-2010139573

PATIENT
  Age: 56 Year
  Sex: Male
  Weight: 127 kg

DRUGS (17)
  1. LYRICA [Suspect]
     Indication: NEUROGENIC PAIN
     Dosage: 75 mg, 4x/day
     Route: 048
     Dates: start: 2008, end: 201212
  2. LYRICA [Suspect]
     Indication: SPINAL COLUMN STENOSIS
     Dosage: 75 mg, 4x/day
     Dates: start: 2005, end: 2012
  3. NEURONTIN [Suspect]
     Indication: NEURALGIA
     Dosage: UNK
     Dates: start: 2003
  4. NEURONTIN [Suspect]
     Indication: SPINAL COLUMN STENOSIS
     Dosage: 2700 mg, daily
     Dates: end: 2008
  5. CYMBALTA [Concomitant]
     Indication: DEPRESSION
     Dosage: 60 mg, daily
  6. CYMBALTA [Concomitant]
     Indication: PAIN
  7. WARFARIN [Concomitant]
  8. DOXAZOSIN [Concomitant]
     Indication: HYPERTROPHY
     Dosage: 4 mg, 2x/day
  9. DEXMETHYLPHENIDATE [Concomitant]
  10. CARVEDILOL [Concomitant]
     Indication: BLOOD PRESSURE ABNORMAL
     Dosage: 12.5 mg, 2x/day
  11. FUROSEMIDE [Concomitant]
  12. ALLOPURINOL [Concomitant]
     Indication: GOUT
     Dosage: 150 mg, daily
  13. AMIODARONE [Concomitant]
     Indication: ATRIAL FIBRILLATION
     Dosage: 200 mg, daily
  14. FOCALIN [Concomitant]
     Indication: ATTENTION DEFICIT DISORDER
     Dosage: 10 mg, 4x/day
  15. DIOVAN (VALSARTAN) [Concomitant]
     Indication: BLOOD PRESSURE ABNORMAL
     Dosage: 320 mg, daily
  16. POTASSIUM CHLORIDE [Concomitant]
     Indication: ELECTROLYTE IMBALANCE
     Dosage: 20 mEq,daily
  17. LASIX [Concomitant]
     Indication: DIURETIC THERAPY
     Dosage: 40 mg, daily

REACTIONS (17)
  - Bacteraemia [Recovered/Resolved]
  - Tendon rupture [Unknown]
  - Surgery [Unknown]
  - Fall [Unknown]
  - Rotator cuff syndrome [Unknown]
  - Atrial fibrillation [Unknown]
  - Toxicity to various agents [Unknown]
  - Drug intolerance [Unknown]
  - Malaise [Unknown]
  - Mental disorder [Unknown]
  - Coordination abnormal [Unknown]
  - Memory impairment [Unknown]
  - Neuralgia [Unknown]
  - Spinal pain [Unknown]
  - Back pain [Unknown]
  - Arthropathy [Unknown]
  - Drug ineffective [Unknown]
